FAERS Safety Report 5945052-2 (Version None)
Quarter: 2008Q4

REPORT INFORMATION
  Report Type: 
  Country: None (occurrence: None)
  Receive Date: 20081105
  Receipt Date: 20081020
  Transmission Date: 20090506
  Serious: Yes (Other)
  Sender: FDA-Public Use
  Company Number: 8038601

PATIENT
  Age: 44 Year
  Sex: Male

DRUGS (6)
  1. PREDNISOLONE [Suspect]
     Indication: IMMUNOSUPPRESSION
  2. BASILIXIMAB [Suspect]
     Indication: IMMUNOSUPPRESSION
  3. AZATHIOPRINE [Suspect]
     Indication: IMMUNOSUPPRESSION
  4. TACROLIMUS [Suspect]
     Indication: IMMUNOSUPPRESSION
  5. MYCOPHENOLATE MOFETIL [Suspect]
     Indication: IMMUNOSUPPRESSION
  6. METHYLPREDNISOLONE 16MG TAB [Suspect]
     Indication: IMMUNOSUPPRESSION
     Dosage: 1000 MG/D; PO
     Route: 048

REACTIONS (4)
  - EPSTEIN-BARR VIRUS ASSOCIATED LYMPHOPROLIFERATIVE DISORDER [None]
  - LYMPHADENOPATHY MEDIASTINAL [None]
  - SPINAL CORD COMPRESSION [None]
  - TRANSPLANT REJECTION [None]
